FAERS Safety Report 13622661 (Version 2)
Quarter: 2017Q3

REPORT INFORMATION
  Report Type: Spontaneous
  Country: US (occurrence: US)
  Receive Date: 20170607
  Receipt Date: 20170717
  Transmission Date: 20171127
  Serious: No
  Sender: FDA-Public Use
  Company Number: US-INCYTE CORPORATION-2017IN002759

PATIENT

DRUGS (10)
  1. IRON [Concomitant]
     Active Substance: IRON
     Indication: PRODUCT USED FOR UNKNOWN INDICATION
  2. CALCIUM WITH VITAMIN D             /00944201/ [Concomitant]
     Active Substance: CALCIUM CARBONATE\CHOLECALCIFEROL
     Indication: PRODUCT USED FOR UNKNOWN INDICATION
  3. ZINC. [Concomitant]
     Active Substance: ZINC
  4. LUTEIN                             /01638501/ [Concomitant]
     Active Substance: LUTEIN
     Indication: PRODUCT USED FOR UNKNOWN INDICATION
  5. VITAMIN B6 [Concomitant]
     Active Substance: PYRIDOXINE HYDROCHLORIDE
     Indication: PRODUCT USED FOR UNKNOWN INDICATION
  6. METRONIDAZOLE. [Concomitant]
     Active Substance: METRONIDAZOLE
     Indication: PRODUCT USED FOR UNKNOWN INDICATION
     Route: 061
  7. JAKAFI [Suspect]
     Active Substance: RUXOLITINIB
     Indication: MYELOFIBROSIS
     Dosage: 15 MG, BID
     Route: 048
     Dates: start: 20170322, end: 20170630
  8. ASPIRIN                            /00002701/ [Concomitant]
     Active Substance: ASPIRIN
     Indication: PRODUCT USED FOR UNKNOWN INDICATION
  9. VITAMIN C [Concomitant]
     Active Substance: ASCORBIC ACID
     Indication: PRODUCT USED FOR UNKNOWN INDICATION
  10. CLOPIDOGREL [Concomitant]
     Active Substance: CLOPIDOGREL BISULFATE
     Indication: PRODUCT USED FOR UNKNOWN INDICATION

REACTIONS (3)
  - Contusion [Recovering/Resolving]
  - Dizziness [Unknown]
  - Flatulence [Recovering/Resolving]

NARRATIVE: CASE EVENT DATE: 2017
